FAERS Safety Report 9926126 (Version 1)
Quarter: 2014Q1

REPORT INFORMATION
  Report Type: Report from Study
  Country: US (occurrence: US)
  Receive Date: 20140226
  Receipt Date: 20140226
  Transmission Date: 20141002
  Serious: Yes (Hospitalization)
  Sender: FDA-Public Use
  Company Number: US-PFIZER INC-2014047943

PATIENT
  Age: 78 Year
  Sex: Female
  Weight: 65 kg

DRUGS (9)
  1. DOXORUBICIN HCL [Suspect]
     Indication: SARCOMA METASTATIC
     Dosage: CYCLIC
     Dates: start: 20130718
  2. DOXORUBICIN HCL [Suspect]
     Dosage: 56.2MG/M2/96.2MG/BOLUS/CYCLE#2
     Dates: start: 20130808, end: 20130808
  3. TYLENOL PM [Concomitant]
     Dosage: UNK
     Dates: start: 20130716
  4. BENICAR [Concomitant]
     Dosage: UNK
     Dates: start: 20121217
  5. SYNTHROID [Concomitant]
     Dosage: UNK
     Dates: start: 20121217
  6. ANTARA [Concomitant]
     Dosage: UNK
     Dates: start: 20121217
  7. PERI-COLACE [Concomitant]
     Dosage: UNK
     Dates: start: 20130705
  8. OXYCODONE [Concomitant]
     Dosage: UNK
     Dates: start: 20130726
  9. NEULASTA [Concomitant]
     Dosage: UNK
     Dates: start: 20130809, end: 20130809

REACTIONS (3)
  - Fatigue [Recovered/Resolved]
  - Supraventricular tachycardia [Recovered/Resolved]
  - Dehydration [Recovered/Resolved]
